FAERS Safety Report 5477520-4 (Version None)
Quarter: 2007Q4

REPORT INFORMATION
  Report Type: 
  Country: None (occurrence: None)
  Receive Date: 20071001
  Receipt Date: 20070918
  Transmission Date: 20080405
  Serious: Yes (Congenital Anomaly)
  Sender: FDA-Public Use
  Company Number: FEI2007-1659

PATIENT
  Age: 25 Week
  Sex: Female
  Weight: 2.6 kg

DRUGS (3)
  1. TCU-380A IUD (INTRAUTERINE CONTRACEPTIVE DEVICE) (UTERINE) [Suspect]
  2. AMOXICILLIN [Concomitant]
  3. CLAVULANIC ACID (CLAVULANIC ACID) [Concomitant]

REACTIONS (10)
  - CAESAREAN SECTION [None]
  - DRUG EXPOSURE DURING PREGNANCY [None]
  - ENTEROCOCCAL INFECTION [None]
  - FOETAL HEART RATE ABNORMAL [None]
  - IUCD COMPLICATION [None]
  - LIMB MALFORMATION [None]
  - LIMB REDUCTION DEFECT [None]
  - PREGNANCY [None]
  - REFUSAL OF TREATMENT BY PATIENT [None]
  - STAPHYLOCOCCAL INFECTION [None]
